FAERS Safety Report 6755016-7 (Version None)
Quarter: 2010Q2

REPORT INFORMATION
  Report Type: 
  Country: None (occurrence: None)
  Receive Date: 20100602
  Receipt Date: 20100525
  Transmission Date: 20101027
  Serious: Yes (Death, Other)
  Sender: FDA-Public Use
  Company Number: 2010US001818

PATIENT
  Age: 29 Year
  Sex: Male

DRUGS (3)
  1. PROGRAF [Suspect]
     Indication: RENAL TRANSPLANT
  2. MYCOPHENOLATE MOFETIL [Suspect]
     Indication: RENAL TRANSPLANT
  3. PREDNISONE [Suspect]
     Indication: RENAL TRANSPLANT

REACTIONS (4)
  - EPSTEIN-BARR VIRUS ANTIBODY POSITIVE [None]
  - LYMPHADENOPATHY [None]
  - MYCOSIS FUNGOIDES STAGE II [None]
  - SUDDEN DEATH [None]
